FAERS Safety Report 9249312 (Version 2)
Quarter: 2013Q4

REPORT INFORMATION
  Report Type: Spontaneous
  Country: GB (occurrence: GB)
  Receive Date: 20130423
  Receipt Date: 20131015
  Transmission Date: 20140711
  Serious: Yes (Disabling)
  Sender: FDA-Public Use
  Company Number: GB-WATSON-2013-06713

PATIENT
  Age: 89 Year
  Sex: Female
  Weight: 56 kg

DRUGS (1)
  1. OMEPRAZOLE (UNKNOWN) [Suspect]
     Dosage: UNK
     Route: 051
     Dates: start: 20121222, end: 20130205

REACTIONS (5)
  - Muscular weakness [Recovered/Resolved with Sequelae]
  - Vision blurred [Unknown]
  - Weight decreased [Unknown]
  - Fall [Unknown]
  - Visual impairment [Unknown]
